FAERS Safety Report 13619510 (Version 1)
Quarter: 2017Q2

REPORT INFORMATION
  Report Type: Spontaneous
  Country: US (occurrence: US)
  Receive Date: 20170606
  Receipt Date: 20170606
  Transmission Date: 20170830
  Serious: No
  Sender: FDA-Public Use
  Company Number: None

PATIENT
  Age: 26 Year
  Sex: Female
  Weight: 83.25 kg

DRUGS (2)
  1. EXCEDRIN PM [Suspect]
     Active Substance: ACETAMINOPHEN\DIPHENHYDRAMINE\DIPHENHYDRAMINE CITRATE
     Indication: HEADACHE
     Dosage: ?          QUANTITY:24 CAPSULE(S);?
     Route: 048
     Dates: start: 20170601, end: 20170606
  2. EXCEDRIN PM [Suspect]
     Active Substance: ACETAMINOPHEN\DIPHENHYDRAMINE\DIPHENHYDRAMINE CITRATE
     Indication: INSOMNIA
     Dosage: ?          QUANTITY:24 CAPSULE(S);?
     Route: 048
     Dates: start: 20170601, end: 20170606

REACTIONS (2)
  - Confusional state [None]
  - Mood altered [None]

NARRATIVE: CASE EVENT DATE: 20170606
